FAERS Safety Report 6183296-8 (Version None)
Quarter: 2009Q2

REPORT INFORMATION
  Report Type: 
  Country: None (occurrence: None)
  Receive Date: 20090507
  Receipt Date: 20090501
  Transmission Date: 20091009
  Serious: Yes (Hospitalization)
  Sender: FDA-Public Use
  Company Number: GB-WYE-G03609809

PATIENT
  Age: 16 Year
  Sex: Male
  Weight: 60 kg

DRUGS (4)
  1. IBUPROFEN TABLETS [Suspect]
     Indication: ABDOMINAL PAIN
     Route: 048
     Dates: start: 20090418, end: 20090424
  2. AMOXICILLIN [Concomitant]
     Dosage: UNKNOWN
  3. TERBUTALINE SULFATE [Concomitant]
     Dosage: UNKNOWN
     Route: 055
  4. ESCITALOPRAM [Suspect]
     Indication: PANIC ATTACK
     Route: 048
     Dates: start: 20090418, end: 20090424

REACTIONS (6)
  - ABDOMINAL DISCOMFORT [None]
  - ABDOMINAL PAIN [None]
  - CONDITION AGGRAVATED [None]
  - DIARRHOEA [None]
  - GASTROINTESTINAL HAEMORRHAGE [None]
  - HAEMATEMESIS [None]
